FAERS Safety Report 8390222 (Version 3)
Quarter: 2012Q4

REPORT INFORMATION
  Report Type: Report from Study
  Country: CA (occurrence: CA)
  Receive Date: 20120203
  Receipt Date: 20121119
  Transmission Date: 20130627
  Serious: Yes (Hospitalization, Other)
  Sender: FDA-Public Use
  Company Number: CA-JNJFOC-20120201529

PATIENT
  Age: 52 None
  Sex: Female

DRUGS (5)
  1. SIMPONI [Suspect]
     Indication: RHEUMATOID ARTHRITIS
     Route: 058
     Dates: start: 20120715, end: 201208
  2. SIMPONI [Suspect]
     Indication: RHEUMATOID ARTHRITIS
     Route: 058
     Dates: start: 201004
  3. NEXIUM [Concomitant]
  4. VOLTAREN [Concomitant]
  5. RAMIPRIL [Concomitant]

REACTIONS (5)
  - Salivary gland calculus [Unknown]
  - Sjogren^s syndrome [Unknown]
  - Sialoadenitis [Not Recovered/Not Resolved]
  - Dry eye [Unknown]
  - Dry mouth [Unknown]
